FAERS Safety Report 5163261-X (Version None)
Quarter: 2006Q4

REPORT INFORMATION
  Report Type: 
  Country: None (occurrence: None)
  Receive Date: 20061204
  Receipt Date: 20061010
  Transmission Date: 20070319
  Serious: No
  Sender: FDA-Public Use
  Company Number: GB-BRISTOL-MYERS SQUIBB COMPANY-13538996

PATIENT
  Age: 32 Year
  Sex: Male
  Weight: 58 kg

DRUGS (8)
  1. AMIKIN [Suspect]
     Indication: PULMONARY TUBERCULOSIS
     Route: 042
     Dates: start: 20060106, end: 20060630
  2. RIFAMPICIN [Concomitant]
     Indication: TUBERCULOSIS
     Route: 048
     Dates: start: 20060106
  3. PROTHIONAMIDE [Concomitant]
     Indication: TUBERCULOSIS
     Route: 048
     Dates: start: 20060106
  4. CIPROFLOXACIN [Concomitant]
     Indication: TUBERCULOSIS
     Route: 048
     Dates: start: 20060106
  5. METOCLOPRAMIDE [Concomitant]
     Route: 048
     Dates: start: 20060106
  6. ACETAMINOPHEN W/ CODEINE [Concomitant]
     Route: 048
     Dates: start: 20060106
  7. CYCLOSERINE [Concomitant]
     Indication: TUBERCULOSIS
     Route: 048
     Dates: start: 20060106
  8. PYRIDOXINE HCL [Concomitant]
     Indication: TUBERCULOSIS
     Route: 048
     Dates: start: 20060106

REACTIONS (1)
  - DEAFNESS [None]
